FAERS Safety Report 6665784-0 (Version None)
Quarter: 2010Q2

REPORT INFORMATION
  Report Type: 
  Country: None (occurrence: None)
  Receive Date: 20100402
  Receipt Date: 20100325
  Transmission Date: 20101027
  Serious: Yes (Other)
  Sender: FDA-Public Use
  Company Number: AU-AMGEN-US379614

PATIENT
  Sex: Male

DRUGS (1)
  1. NPLATE [Suspect]
     Indication: IDIOPATHIC THROMBOCYTOPENIC PURPURA
     Dates: start: 20090915, end: 20091215

REACTIONS (4)
  - DRUG INTOLERANCE [None]
  - MUSCULOSKELETAL PAIN [None]
  - RASH [None]
  - THERAPEUTIC RESPONSE DECREASED [None]
